FAERS Safety Report 4673291-X (Version None)
Quarter: 2005Q2

REPORT INFORMATION
  Report Type: 
  Country: None (occurrence: None)
  Receive Date: 20050524
  Receipt Date: 20050524
  Transmission Date: 20051028
  Serious: Yes (Hospitalization)
  Sender: FDA-Public Use
  Company Number: None

PATIENT
  Age: 71 Year
  Sex: Male
  Weight: 78 kg

DRUGS (14)
  1. FUROSEMIDE [Suspect]
     Indication: OEDEMA
     Dosage: 240MG BID ORAL
     Route: 048
     Dates: start: 20050120, end: 20050127
  2. METOLAZONE [Suspect]
     Dosage: 5MG DAILY ORAL
     Route: 048
  3. METOPROLOL TARTRATE [Concomitant]
  4. FOSINOPRIL [Concomitant]
  5. GLIPIZIDE [Concomitant]
  6. PREDNISONE TAB [Concomitant]
  7. CALCIUM 500MG/VITAMIN D [Concomitant]
  8. WARFARIN SODIUM [Concomitant]
  9. OMEPRAZOLE [Concomitant]
  10. IRBESARTAN [Concomitant]
  11. GLYCERIN [Concomitant]
  12. PHOSPHATES ENEMA [Concomitant]
  13. DOCUSATE [Concomitant]
  14. TERAZOSIN HCL [Concomitant]

REACTIONS (8)
  - ANAEMIA [None]
  - ASTHENIA [None]
  - BLOOD CREATININE INCREASED [None]
  - DIZZINESS [None]
  - HYPOVOLAEMIA [None]
  - POLLAKIURIA [None]
  - THIRST [None]
  - WEIGHT DECREASED [None]
